FAERS Safety Report 5387467-X (Version None)
Quarter: 2007Q3

REPORT INFORMATION
  Report Type: 
  Country: None (occurrence: None)
  Receive Date: 20070711
  Receipt Date: 20070711
  Transmission Date: 20080115
  Serious: Yes (Death, Hospitalization)
  Sender: FDA-Public Use
  Company Number: None

PATIENT
  Sex: Female
  Weight: 76.8 kg

DRUGS (3)
  1. CYCLOPHOSPHAMIDE [Suspect]
     Dosage: 875 MG
     Dates: end: 20070626
  2. TAXOTERE [Suspect]
     Dosage: 104 MG
     Dates: end: 20070626
  3. DOXORUBICIN HYDROCHLORIDE [Suspect]
     Dosage: 87 MG
     Dates: end: 20070626

REACTIONS (13)
  - ABDOMINAL PAIN [None]
  - BACK PAIN [None]
  - BLOOD CULTURE POSITIVE [None]
  - BLOOD PRESSURE DECREASED [None]
  - DYSPNOEA [None]
  - HEART RATE INCREASED [None]
  - NAUSEA [None]
  - OXYGEN SATURATION DECREASED [None]
  - PLATELET COUNT DECREASED [None]
  - PSEUDOMONAS INFECTION [None]
  - SEPSIS [None]
  - VOMITING [None]
  - WHITE BLOOD CELL COUNT DECREASED [None]
